FAERS Safety Report 9217656 (Version 2)
Quarter: 2013Q4

REPORT INFORMATION
  Report Type: Spontaneous
  Country: US (occurrence: US)
  Receive Date: 20130408
  Receipt Date: 20131112
  Transmission Date: 20140711
  Serious: Yes (Other)
  Sender: FDA-Public Use
  Company Number: US-BAYER-2013-042738

PATIENT
  Age: 30 Year
  Sex: Female

DRUGS (4)
  1. OCELLA [Suspect]
     Indication: CONTRACEPTION
     Dosage: UNK
     Dates: start: 2009
  2. YAZ [Suspect]
  3. TUMS [CALCIUM CARBONATE] [Concomitant]
     Route: 048
  4. ZANTAC [Concomitant]
     Route: 048

REACTIONS (5)
  - Cholecystectomy [None]
  - Cholelithiasis [None]
  - Pain [None]
  - Injury [None]
  - Pain [None]
